FAERS Safety Report 10922530 (Version 2)
Quarter: 2015Q2

REPORT INFORMATION
  Report Type: Spontaneous
  Country: US (occurrence: US)
  Receive Date: 20150317
  Receipt Date: 20150414
  Transmission Date: 20150821
  Serious: Yes (Hospitalization, Other)
  Sender: FDA-Public Use
  Company Number: US-SHIRE-US201502063

PATIENT
  Age: 87 Year
  Sex: Male
  Weight: 73.47 kg

DRUGS (2)
  1. RENVELA [Concomitant]
     Active Substance: SEVELAMER CARBONATE
     Indication: HYPERPHOSPHATAEMIA
     Dosage: 800 MG (TWO TABLETS), 3X/DAY:TID
     Route: 048
  2. FOSRENOL [Suspect]
     Active Substance: LANTHANUM CARBONATE
     Indication: HYPERPHOSPHATAEMIA
     Dosage: 1000 MG, OTHER (WITH EACH MEAL DAILY) EATS 2 MEALS
     Route: 048
     Dates: start: 201412, end: 201502

REACTIONS (3)
  - Apparent life threatening event [Unknown]
  - Constipation [Unknown]
  - Proctalgia [Unknown]

NARRATIVE: CASE EVENT DATE: 201502
